FAERS Safety Report 13632565 (Version 1)
Quarter: 2017Q2

REPORT INFORMATION
  Report Type: Report from Study
  Country: None (occurrence: US)
  Receive Date: 20170608
  Receipt Date: 20170608
  Transmission Date: 20170830
  Serious: Yes (Other)
  Sender: FDA-Public Use
  Company Number: US-ABBVIE-17K-163-1999130-00

PATIENT
  Age: 44 Year
  Sex: Female

DRUGS (1)
  1. HUMIRA [Suspect]
     Active Substance: ADALIMUMAB
     Indication: RHEUMATOID ARTHRITIS
     Route: 058

REACTIONS (9)
  - Rheumatoid arthritis [Unknown]
  - Pain in extremity [Unknown]
  - Uterine haemorrhage [Unknown]
  - Urinary retention postoperative [Unknown]
  - Vision blurred [Unknown]
  - Uterine leiomyoma [Unknown]
  - Appendicitis perforated [Unknown]
  - Loss of consciousness [Unknown]
  - Post procedural infection [Unknown]

NARRATIVE: CASE EVENT DATE: 200606
